FAERS Safety Report 5455099-0 (Version None)
Quarter: 2007Q3

REPORT INFORMATION
  Report Type: 
  Country: None (occurrence: None)
  Receive Date: 20070913
  Receipt Date: 20070814
  Transmission Date: 20080115
  Serious: Yes (Life-Threatening)
  Sender: FDA-Public Use
  Company Number: 001#1#2007-00542

PATIENT
  Age: 86 Year
  Sex: Female

DRUGS (4)
  1. NEUPRO [Suspect]
     Indication: PARKINSON'S DISEASE
     Dosage: SEE IMAGE
     Route: 062
     Dates: start: 20070717, end: 20070718
  2. NEUPRO [Suspect]
     Indication: PARKINSON'S DISEASE
     Dosage: SEE IMAGE
     Route: 062
     Dates: start: 20070721, end: 20070809
  3. NEUPRO [Suspect]
     Indication: PARKINSON'S DISEASE
     Dosage: SEE IMAGE
     Route: 062
     Dates: start: 20070810
  4. LEVODOPA-CARBIDOPA (LEVODOPA) [Concomitant]

REACTIONS (3)
  - DISTURBANCE IN ATTENTION [None]
  - FATIGUE [None]
  - SOMNOLENCE [None]
